FAERS Safety Report 6688439-5 (Version None)
Quarter: 2010Q2

REPORT INFORMATION
  Report Type: 
  Country: None (occurrence: None)
  Receive Date: 20100420
  Receipt Date: 20100415
  Transmission Date: 20101027
  Serious: Yes (Death, Hospitalization)
  Sender: FDA-Public Use
  Company Number: US-ELI_LILLY_AND_COMPANY-US201004000892

PATIENT
  Sex: Male
  Weight: 82.1 kg

DRUGS (6)
  1. PEMETREXED [Suspect]
     Indication: T-CELL LYMPHOMA
     Dosage: 500 MG/M2, OTHER
     Route: 042
     Dates: start: 20100309, end: 20100323
  2. GEMCITABINE HCL [Suspect]
     Indication: T-CELL LYMPHOMA
     Dosage: 1000 MG/M2, OTHER
     Route: 042
     Dates: start: 20100309, end: 20100323
  3. FOLIC ACID [Concomitant]
     Dosage: UNK, UNK
     Dates: start: 20100305, end: 20100329
  4. VITAMIN B-12 [Concomitant]
     Dosage: UNK, UNK
     Dates: start: 20100305, end: 20100305
  5. DEXAMETHASONE [Concomitant]
     Dosage: UNK, UNK
     Dates: start: 20100308, end: 20100324
  6. FRAGMIN /01708302/ [Concomitant]

REACTIONS (9)
  - ANAEMIA [None]
  - BLOOD CREATININE [None]
  - FEBRILE NEUTROPENIA [None]
  - HYPOCALCAEMIA [None]
  - INTERNATIONAL NORMALISED RATIO INCREASED [None]
  - LEUKOPENIA [None]
  - SEPSIS [None]
  - SKIN INFECTION [None]
  - THROMBOCYTOPENIA [None]
